FAERS Safety Report 6663560-6 (Version None)
Quarter: 2010Q2

REPORT INFORMATION
  Report Type: 
  Country: None (occurrence: None)
  Receive Date: 20100401
  Receipt Date: 20100324
  Transmission Date: 20101027
  Serious: Yes (Hospitalization, Other)
  Sender: FDA-Public Use
  Company Number: FR-BRISTOL-MYERS SQUIBB COMPANY-15036387

PATIENT
  Age: 80 Year
  Sex: Male

DRUGS (6)
  1. COUMADIN [Suspect]
     Indication: ATRIAL FIBRILLATION
     Dosage: 1 DF = 1.5 UNITS NOT SPECIFIED STRENGTH: 2MG
     Dates: start: 20090922
  2. THERALENE [Suspect]
     Indication: AGITATION
     Dosage: 4% DROPS , 10 DROPS/DAY
     Dates: start: 20090922, end: 20091001
  3. LASIX [Suspect]
     Indication: ATRIAL FIBRILLATION
     Dosage: TAB
     Dates: start: 20090922, end: 20091002
  4. OGASTORO [Suspect]
     Dosage: TAB
     Dates: start: 20090922, end: 20091001
  5. TAREG [Suspect]
     Dates: start: 20090922, end: 20091001
  6. IMOVANE [Suspect]
     Indication: INSOMNIA
     Dates: start: 20090922

REACTIONS (5)
  - LEUKOPENIA [None]
  - LYMPHOPENIA [None]
  - NEUTROPENIA [None]
  - RENAL FAILURE [None]
  - THROMBOCYTOPENIA [None]
